FAERS Safety Report 19082779 (Version 1)
Quarter: 2021Q2

REPORT INFORMATION
  Report Type: Spontaneous
  Country: JP (occurrence: JP)
  Receive Date: 20210401
  Receipt Date: 20210401
  Transmission Date: 20210717
  Serious: Yes (Hospitalization)
  Sender: FDA-Public Use
  Company Number: JP-MYLANLABS-2021M1019089

PATIENT
  Age: 86 Year
  Sex: Female

DRUGS (1)
  1. ALENDRONATE [Suspect]
     Active Substance: ALENDRONATE SODIUM
     Indication: OSTEOPOROSIS
     Route: 065
     Dates: start: 2009, end: 2015

REACTIONS (3)
  - Ulna fracture [Recovered/Resolved]
  - Multiple fractures [Recovered/Resolved]
  - Atypical fracture [Recovered/Resolved]

NARRATIVE: CASE EVENT DATE: 2018
